FAERS Safety Report 4305134-8 (Version None)
Quarter: 2004Q1

REPORT INFORMATION
  Report Type: 
  Country: None (occurrence: None)
  Receive Date: 20040225
  Receipt Date: 20040225
  Transmission Date: 20041129
  Serious: Yes (Hospitalization)
  Sender: FDA-Public Use
  Company Number: None

PATIENT
  Sex: Female

DRUGS (12)
  1. IMATINIB [Suspect]
     Indication: CHRONIC MYELOID LEUKAEMIA
     Dosage: 600 MG PO QD
     Route: 048
  2. APAP TAB [Concomitant]
  3. BACLOFEN [Concomitant]
  4. CEFEPIME [Concomitant]
  5. FLUTICASONE PROPIONATE [Concomitant]
  6. VANCOMYCIN [Concomitant]
  7. DOCUSATE [Concomitant]
  8. HYDROCHLOROTHIAZIDE [Concomitant]
  9. TEMAZEPAM [Concomitant]
  10. HYDROMORPHONE [Concomitant]
  11. BISACODYL [Concomitant]
  12. METRONIDAZOLE [Concomitant]

REACTIONS (10)
  - BLOOD ALKALINE PHOSPHATASE INCREASED [None]
  - BLOOD BILIRUBIN INCREASED [None]
  - CHILLS [None]
  - DIARRHOEA [None]
  - HEPATIC CIRRHOSIS [None]
  - HEPATOCELLULAR DAMAGE [None]
  - PAIN IN EXTREMITY [None]
  - PLATELET COUNT DECREASED [None]
  - PYREXIA [None]
  - WHITE BLOOD CELL COUNT DECREASED [None]
